FAERS Safety Report 15020470 (Version 1)
Quarter: 2018Q2

REPORT INFORMATION
  Report Type: Spontaneous
  Country: JP (occurrence: JP)
  Receive Date: 20180618
  Receipt Date: 20180618
  Transmission Date: 20180711
  Serious: Yes (Other)
  Sender: FDA-Public Use
  Company Number: JP-ASTELLAS-2018JP010963

PATIENT
  Age: 14 Year
  Sex: Female

DRUGS (13)
  1. FUNGUARD [Suspect]
     Active Substance: MICAFUNGIN SODIUM
     Indication: INFECTION PROPHYLAXIS
     Route: 042
  2. IMMUNOGLOBULIN                     /07494701/ [Concomitant]
     Active Substance: IMMUNE GLOBULIN NOS
     Indication: INFECTION PROPHYLAXIS
     Route: 042
  3. TACROLIMUS. [Suspect]
     Active Substance: TACROLIMUS
     Indication: PROPHYLAXIS AGAINST GRAFT VERSUS HOST DISEASE
     Dosage: UNK UNK, UNKNOWN FREQ.
     Route: 065
  4. TACROLIMUS. [Suspect]
     Active Substance: TACROLIMUS
     Dosage: ADJUSTED AT THE TARGET BLOOD LEVEL OF 10 NG/ML
     Route: 065
  5. CYTARABINE. [Concomitant]
     Active Substance: CYTARABINE
     Indication: ACUTE MYELOID LEUKAEMIA
     Dosage: UNK UNK, UNKNOWN FREQ.
     Route: 065
  6. IMMUNOGLOBULIN                     /07494701/ [Concomitant]
     Active Substance: IMMUNE GLOBULIN NOS
     Indication: BONE MARROW CONDITIONING REGIMEN
     Route: 065
  7. ACICLOVIR [Concomitant]
     Active Substance: ACYCLOVIR
     Indication: INFECTION PROPHYLAXIS
     Route: 048
  8. CYTARABINE. [Concomitant]
     Active Substance: CYTARABINE
     Indication: BONE MARROW CONDITIONING REGIMEN
     Dosage: 6 G/M^2, UNKNOWN FREQ.
     Route: 065
  9. LENOGRASTIM [Concomitant]
     Active Substance: LENOGRASTIM
     Indication: BONE MARROW CONDITIONING REGIMEN
     Route: 065
  10. CIPROFLOXACIN. [Concomitant]
     Active Substance: CIPROFLOXACIN
     Indication: INFECTION PROPHYLAXIS
     Route: 048
  11. CYCLOPHOSPHAMIDE. [Concomitant]
     Active Substance: CYCLOPHOSPHAMIDE
     Indication: BONE MARROW CONDITIONING REGIMEN
     Route: 065
  12. METHOTREXATE. [Concomitant]
     Active Substance: METHOTREXATE
     Indication: PROPHYLAXIS AGAINST GRAFT VERSUS HOST DISEASE
     Dosage: SHORT TERM
     Route: 065
  13. PREDNISOLONE. [Concomitant]
     Active Substance: PREDNISOLONE
     Indication: PROPHYLAXIS AGAINST GRAFT VERSUS HOST DISEASE
     Dosage: UNK UNK, UNKNOWN FREQ.
     Route: 065

REACTIONS (3)
  - Cytomegalovirus infection [Recovering/Resolving]
  - Herpes virus infection [Recovering/Resolving]
  - Prescribed overdose [Unknown]
